FAERS Safety Report 6261378-X (Version None)
Quarter: 2009Q3

REPORT INFORMATION
  Report Type: 
  Country: None (occurrence: None)
  Receive Date: 20090709
  Receipt Date: 20071107
  Transmission Date: 20100115
  Serious: Yes (Hospitalization, Other)
  Sender: FDA-Public Use
  Company Number: US-ASTRAZENECA-2007UW05557

PATIENT
  Age: 36 Year
  Sex: Female
  Weight: 63.5 kg

DRUGS (36)
  1. SEROQUEL [Suspect]
     Indication: BIPOLAR DISORDER
     Dosage: 25-200MG
     Route: 048
     Dates: start: 19990823, end: 20061201
  2. SEROQUEL [Suspect]
     Indication: DEPRESSION
     Dosage: 25-200MG
     Route: 048
     Dates: start: 19990823, end: 20061201
  3. SEROQUEL [Suspect]
     Dosage: 25-300 MG
     Route: 048
     Dates: start: 19990823
  4. SEROQUEL [Suspect]
     Dosage: 25-300 MG
     Route: 048
     Dates: start: 19990823
  5. FLAGYL [Concomitant]
     Route: 048
  6. FLONASE [Concomitant]
     Route: 065
  7. PAXIL [Concomitant]
     Dosage: 10-40 MG
     Route: 048
  8. TAGAMET [Concomitant]
     Route: 048
  9. ALBUTEROL [Concomitant]
     Dosage: 90 UG-17 MG
     Route: 065
  10. AEROBID [Concomitant]
     Route: 065
  11. POTASSIUM CHLORIDE [Concomitant]
     Route: 065
  12. HYDROMORPHONE HCL [Concomitant]
     Route: 065
  13. HYDROMORPHONE HCL [Concomitant]
     Dosage: 1 - 2 MG/ML
     Route: 065
  14. METOCLOPRAMIDE [Concomitant]
     Dosage: 5-10 MG/ML
     Route: 065
  15. CLONAZEPAM [Concomitant]
     Route: 065
  16. NYSTATIN [Concomitant]
     Route: 065
  17. AMYLASE-LIPASE-PROTEASE CAPSULE [Concomitant]
     Route: 065
  18. WELLBUTRIN [Concomitant]
     Dosage: 100-200 MG
     Route: 065
  19. LEXAPRO [Concomitant]
     Dosage: 10-20 MG
     Route: 048
  20. BACLOFEN [Concomitant]
     Dosage: 10-20 MG
     Route: 065
  21. PHENERGAN [Concomitant]
     Indication: NAUSEA
     Route: 065
  22. PHENERGAN [Concomitant]
     Indication: VOMITING
     Route: 065
  23. ADVAIR HFA [Concomitant]
     Route: 065
  24. ZOCOR [Concomitant]
     Route: 065
  25. SINGULAIR [Concomitant]
     Route: 065
  26. TRAZODONE HCL [Concomitant]
     Dosage: 50-150 MG
     Route: 065
  27. GLIPIZIDE [Concomitant]
     Route: 065
  28. CLARITIN [Concomitant]
     Route: 065
  29. PRILOSEC [Concomitant]
     Dosage: 20-40 MG
     Route: 065
  30. COMBIVENT [Concomitant]
     Route: 065
  31. ALEVE [Concomitant]
     Route: 065
  32. ESGIC [Concomitant]
     Dosage: 50-325-40 MG
     Route: 065
  33. PERCOCET [Concomitant]
     Dosage: 5/325 MG
     Route: 065
  34. ZOMIG [Concomitant]
     Dosage: 2.5-5 MG
     Route: 065
  35. SERZONE [Concomitant]
     Dosage: 100, 150 MG
     Route: 065
  36. ATENOLOL [Concomitant]
     Route: 065

REACTIONS (5)
  - HYPERGLYCAEMIA [None]
  - PANCREATITIS ACUTE [None]
  - PANCREATITIS CHRONIC [None]
  - PANCREATITIS RELAPSING [None]
  - PSEUDOCYST [None]
